FAERS Safety Report 8102034-2 (Version None)
Quarter: 2012Q1

REPORT INFORMATION
  Report Type: 
  Country: None (occurrence: None)
  Receive Date: 20120131
  Receipt Date: 20120125
  Transmission Date: 20120608
  Serious: Yes (Other)
  Sender: FDA-Public Use
  Company Number: GB-ABBOTT-12P-167-0898283-00

PATIENT
  Sex: Male

DRUGS (3)
  1. HUMIRA [Suspect]
     Indication: PSORIASIS
     Route: 058
     Dates: start: 20070301
  2. HUMIRA [Suspect]
     Dates: start: 20120120
  3. HUMIRA [Suspect]
     Dates: start: 20111101

REACTIONS (5)
  - MALAISE [None]
  - COUGH [None]
  - PNEUMONIA [None]
  - VOMITING [None]
  - OEDEMA PERIPHERAL [None]
